FAERS Safety Report 17288026 (Version 5)
Quarter: 2022Q3

REPORT INFORMATION
  Report Type: Spontaneous
  Country: US (occurrence: US)
  Receive Date: 20200120
  Receipt Date: 20220805
  Transmission Date: 20221026
  Serious: Yes (Other)
  Sender: FDA-Public Use
  Company Number: US-TAKEDA-2020TUS002556

PATIENT
  Age: 78 Year
  Sex: Female
  Weight: 65.76 kg

DRUGS (1)
  1. NINLARO [Suspect]
     Active Substance: IXAZOMIB CITRATE
     Indication: Plasma cell myeloma
     Dosage: 3 MILLIGRAM
     Route: 048
     Dates: start: 20190128

REACTIONS (4)
  - Intentional product misuse [Unknown]
  - Femur fracture [Unknown]
  - Fall [Unknown]
  - Rash [Unknown]

NARRATIVE: CASE EVENT DATE: 20200111
